FAERS Safety Report 20938132 (Version 1)
Quarter: 2022Q2

REPORT INFORMATION
  Report Type: Spontaneous
  Country: US (occurrence: None)
  Receive Date: 20220608
  Receipt Date: 20220608
  Transmission Date: 20220721
  Serious: Yes (Other)
  Sender: FDA-Public Use
  Company Number: None

PATIENT
  Age: 57 Year
  Sex: Female
  Weight: 110.25 kg

DRUGS (18)
  1. BENLYSTA [Suspect]
     Active Substance: BELIMUMAB
     Indication: Systemic lupus erythematosus
     Dosage: OTHER QUANTITY : 1 INJECTION(S);?OTHER FREQUENCY : 1X WEEKLY;?
     Route: 058
     Dates: start: 20211120, end: 20220528
  2. SLEEP APNEA MACHINE [Concomitant]
  3. PREDNISONE [Concomitant]
     Active Substance: PREDNISONE
  4. METHOTREXATE [Concomitant]
     Active Substance: METHOTREXATE
  5. HYDROXYCHLOROQUINE [Concomitant]
     Active Substance: HYDROXYCHLOROQUINE
  6. FOLIC ACID [Concomitant]
     Active Substance: FOLIC ACID
  7. OTC ALLERGY MEDS [Concomitant]
  8. VITAMIN D [Concomitant]
     Active Substance: VITAMIN D NOS
  9. MUNOCIPRUN [Concomitant]
  10. VITAMIN D3 [Concomitant]
     Active Substance: CHOLECALCIFEROL
  11. CALCIUM [Concomitant]
     Active Substance: CALCIUM
  12. MAGNESIUM [Concomitant]
     Active Substance: MAGNESIUM
  13. MULTI BONE COMPLEX VITAMN [Concomitant]
  14. XYZAL [Concomitant]
     Active Substance: LEVOCETIRIZINE DIHYDROCHLORIDE
  15. NASAL SPRAY FLUTONASE [Concomitant]
  16. ALLERGY EYE DROPS [Concomitant]
     Active Substance: NAPHAZOLINE HYDROCHLORIDE\PHENIRAMINE MALEATE
  17. MEDICAL CANNIBIS [Concomitant]
  18. BENLYSTA [Concomitant]
     Active Substance: BELIMUMAB

REACTIONS (7)
  - Feeling of despair [None]
  - Depression [None]
  - Panic reaction [None]
  - Heart rate increased [None]
  - Anxiety [None]
  - Insomnia [None]
  - Chest discomfort [None]

NARRATIVE: CASE EVENT DATE: 20220604
